FAERS Safety Report 16860545 (Version 2)
Quarter: 2019Q4

REPORT INFORMATION
  Report Type: Spontaneous
  Country: US (occurrence: US)
  Receive Date: 20190927
  Receipt Date: 20191126
  Transmission Date: 20200122
  Serious: No
  Sender: FDA-Public Use
  Company Number: US-PFIZER INC-2019415812

PATIENT
  Age: 56 Year
  Sex: Female

DRUGS (6)
  1. XELJANZ XR [Suspect]
     Active Substance: TOFACITINIB CITRATE
     Indication: RHEUMATOID ARTHRITIS
     Dosage: 11 MG, DAILY
     Route: 048
     Dates: start: 20180901
  2. BIOTIN [Concomitant]
     Active Substance: BIOTIN
     Dosage: 10000 UG, UNK
  3. IRON 100 PLUS [Concomitant]
     Active Substance: ASCORBIC ACID\CYANOCOBALAMIN\FOLIC ACID\IRON
     Dosage: 1 DF (100-250), UNK
  4. PRENATAL [FOLIC ACID;IRON] [Concomitant]
     Dosage: UNK (27MG-0.8MG TABLET)
  5. MAGNESIUM ACETATE [Concomitant]
     Active Substance: MAGNESIUM ACETATE
     Dosage: 250 MG, UNK
  6. VITAMIN D [COLECALCIFEROL] [Concomitant]
     Active Substance: CHOLECALCIFEROL
     Dosage: 400 IU, UNK

REACTIONS (1)
  - Uterine polyp [Unknown]
